FAERS Safety Report 24578363 (Version 2)
Quarter: 2024Q4

REPORT INFORMATION
  Report Type: Spontaneous
  Country: MX (occurrence: MX)
  Receive Date: 20241105
  Receipt Date: 20241210
  Transmission Date: 20250115
  Serious: No
  Sender: NOVO NORDISK
  Company Number: MX-NOVOPROD-1307963

PATIENT
  Age: 50 Year
  Sex: Male
  Weight: 65 kg

DRUGS (1)
  1. TRESIBA [Suspect]
     Active Substance: INSULIN DEGLUDEC
     Indication: Type 2 diabetes mellitus
     Dosage: 18 IU, QD( 5 YEARS AGO)

REACTIONS (1)
  - Diabetes mellitus inadequate control [Recovered/Resolved]
